FAERS Safety Report 6176257-6 (Version None)
Quarter: 2009Q2

REPORT INFORMATION
  Report Type: 
  Country: None (occurrence: None)
  Receive Date: 20090501
  Receipt Date: 20090423
  Transmission Date: 20091009
  Serious: Yes (Hospitalization)
  Sender: FDA-Public Use
  Company Number: B0565410A

PATIENT
  Sex: Female

DRUGS (5)
  1. LAMICTAL [Suspect]
     Indication: TEMPORAL LOBE EPILEPSY
     Route: 048
     Dates: start: 20090119, end: 20090303
  2. VOLTAREN [Suspect]
     Indication: BACK PAIN
     Route: 054
     Dates: start: 20090101, end: 20090301
  3. CLOBAZAM [Suspect]
     Indication: DRUG USE FOR UNKNOWN INDICATION
     Route: 048
     Dates: start: 20020901
  4. LOXONIN [Concomitant]
     Indication: BACK PAIN
     Route: 048
     Dates: end: 20090301
  5. MUCOSTA [Concomitant]
     Route: 048

REACTIONS (10)
  - ABNORMAL BEHAVIOUR [None]
  - AGITATION [None]
  - CONFUSIONAL STATE [None]
  - DEPRESSED LEVEL OF CONSCIOUSNESS [None]
  - FEELING ABNORMAL [None]
  - HEADACHE [None]
  - MALAISE [None]
  - MUSCLE RIGIDITY [None]
  - SOMNOLENCE [None]
  - VISUAL IMPAIRMENT [None]
